FAERS Safety Report 9895799 (Version 1)
Quarter: 2014Q1

REPORT INFORMATION
  Report Type: Spontaneous
  Country: US (occurrence: US)
  Receive Date: 20140213
  Receipt Date: 20140213
  Transmission Date: 20141002
  Serious: No
  Sender: FDA-Public Use
  Company Number: US-BRISTOL-MYERS SQUIBB COMPANY-19522333

PATIENT
  Sex: 0

DRUGS (9)
  1. ORENCIA [Suspect]
     Indication: RHEUMATOID ARTHRITIS
  2. ACTEMRA [Suspect]
  3. ENBREL [Suspect]
  4. CIMZIA [Suspect]
  5. HUMIRA [Suspect]
  6. REMICADE [Suspect]
  7. SULPHASALAZINE [Suspect]
  8. AZATHIOPRINE [Suspect]
  9. ARAVA [Suspect]

REACTIONS (2)
  - Drug ineffective [Unknown]
  - Adverse event [Unknown]
